FAERS Safety Report 10257204 (Version 5)
Quarter: 2015Q1

REPORT INFORMATION
  Report Type: Report from Study
  Country: RU (occurrence: RU)
  Receive Date: 20140625
  Receipt Date: 20150224
  Transmission Date: 20150720
  Serious: Yes (Life-Threatening, Hospitalization)
  Sender: FDA-Public Use
  Company Number: RU-AMGEN-RUSCT2014047605

PATIENT
  Age: 55 Year
  Sex: Female

DRUGS (6)
  1. ETANERCEPT [Suspect]
     Active Substance: ETANERCEPT
     Indication: RHEUMATOID ARTHRITIS
     Dosage: 50 MG, 1X/WEEK (LAST DOSE PRIOR TO SUSPECTED BREAST NEOPLASM 28/MAY/2014)
     Route: 058
  2. NIMESULIDE [Concomitant]
     Active Substance: NIMESULIDE
     Indication: RHEUMATOID ARTHRITIS
     Dosage: 200 MG (100 MG,2 IN 1 D)
     Route: 048
     Dates: start: 2011
  3. PREDNIZOLON [Concomitant]
     Indication: RHEUMATOID ARTHRITIS
     Dosage: 10 MG (10 MG,1 IN 1 D)
     Route: 048
     Dates: start: 200805
  4. PROPRANOLOL [Concomitant]
     Active Substance: PROPRANOLOL\PROPRANOLOL HYDROCHLORIDE
     Indication: HYPERTENSION
     Dosage: 80 MG (40 MG,2 IN 1 D)
     Route: 048
  5. AZAPENTACENE [Concomitant]
     Indication: GLAUCOMA
     Dosage: 2 DROP (2 IN 1 D) (SOLUTION)
     Route: 047
     Dates: start: 20140501
  6. LATANOPROST. [Concomitant]
     Active Substance: LATANOPROST
     Indication: GLAUCOMA
     Dosage: 1 DROPS (1 IN 1 D) (SOLUTION)
     Route: 047
     Dates: start: 20140501

REACTIONS (1)
  - Breast fibrosis [Recovered/Resolved]

NARRATIVE: CASE EVENT DATE: 20140602
